FAERS Safety Report 11841173 (Version 1)
Quarter: 2015Q4

REPORT INFORMATION
  Report Type: Spontaneous
  Country: US (occurrence: US)
  Receive Date: 20151216
  Receipt Date: 20151216
  Transmission Date: 20160305
  Serious: No
  Sender: FDA-Public Use
  Company Number: US-MYLANLABS-2015M1032696

PATIENT
  Age: 38 Year
  Sex: Female

DRUGS (1)
  1. MORPHINE SULFATE EXTENDED-RELEASE [Suspect]
     Active Substance: MORPHINE SULFATE
     Indication: PAIN
     Dosage: 15 MG, QID
     Route: 048
     Dates: start: 20150923, end: 20150923

REACTIONS (1)
  - Hypersensitivity [Recovering/Resolving]

NARRATIVE: CASE EVENT DATE: 20150923
